FAERS Safety Report 19843387 (Version 3)
Quarter: 2022Q1

REPORT INFORMATION
  Report Type: Report from Study
  Country: US (occurrence: US)
  Receive Date: 20210917
  Receipt Date: 20220115
  Transmission Date: 20220423
  Serious: Yes (Hospitalization)
  Sender: FDA-Public Use
  Company Number: US-REGENERON PHARMACEUTICALS, INC.-2021-84014

PATIENT
  Age: 48 Year
  Sex: Female

DRUGS (20)
  1. CASIRIVIMAB\IMDEVIMAB [Suspect]
     Active Substance: CASIRIVIMAB\IMDEVIMAB
     Indication: COVID-19
     Dosage: 1200 MG, ONCE
     Route: 042
     Dates: start: 20210814, end: 20210814
  2. ACETAMINOPHEN [Concomitant]
     Active Substance: ACETAMINOPHEN
     Indication: Product used for unknown indication
     Dosage: 500 MG, UNK
  3. GAVISCON                           /00902401/ [Concomitant]
     Indication: Product used for unknown indication
     Dosage: 80-14.2MG, BID
     Route: 048
  4. ALBUTEROL SULFATE [Concomitant]
     Active Substance: ALBUTEROL SULFATE
     Indication: Wheezing
     Dosage: 2 PUFFS EVERY 6 HOURS AS NEEDED
     Route: 055
  5. XANAX [Concomitant]
     Active Substance: ALPRAZOLAM
     Indication: Product used for unknown indication
     Dosage: 0.25 MG, SINGLE
     Route: 048
  6. NEXIUM                             /01479302/ [Concomitant]
     Indication: Product used for unknown indication
     Dosage: 20 MG, BID
  7. PEPCID                             /00706001/ [Concomitant]
     Indication: Product used for unknown indication
     Dosage: 40 MG, UNK
  8. FLONASE                            /00972202/ [Concomitant]
     Indication: Product used for unknown indication
     Dosage: 1 SPRAY IN EACH NOSTRIL 1 TIME DAILY
     Route: 045
  9. AMARYL [Concomitant]
     Active Substance: GLIMEPIRIDE
     Indication: Product used for unknown indication
     Dosage: 2 MG, UNK
  10. HYDRODIURIL [Concomitant]
     Active Substance: HYDROCHLOROTHIAZIDE
     Indication: Product used for unknown indication
     Dosage: 25 MG, UNK
     Route: 048
  11. MOTRIN                             /00109201/ [Concomitant]
     Indication: Product used for unknown indication
     Dosage: 200 MG EVERY 8HRS AS NEEDED
     Route: 048
  12. DUONEB [Concomitant]
     Active Substance: ALBUTEROL SULFATE\IPRATROPIUM BROMIDE
     Indication: Product used for unknown indication
     Dosage: 3 ML BY INHALATION 1 TIME DAILY AS NEEDED
     Route: 055
  13. XYZAL [Concomitant]
     Active Substance: LEVOCETIRIZINE DIHYDROCHLORIDE
     Indication: Product used for unknown indication
     Dosage: 1 TABLET EERY NIGHT
     Route: 048
  14. COZAAR [Concomitant]
     Active Substance: LOSARTAN POTASSIUM
     Indication: Product used for unknown indication
     Dosage: 25 MG, UNK
  15. MOBIC [Concomitant]
     Active Substance: MELOXICAM
     Indication: Product used for unknown indication
     Dosage: 7.5 MG, UNK
     Route: 048
  16. GLUCOPHAGE [Concomitant]
     Active Substance: METFORMIN HYDROCHLORIDE
     Indication: Product used for unknown indication
     Dosage: 500 MG, UNK
     Route: 048
  17. ESTROVEN ENERGY [Concomitant]
     Indication: Product used for unknown indication
     Route: 048
  18. ZOFRAN                             /00955301/ [Concomitant]
     Indication: Product used for unknown indication
     Dosage: 4 MG, UNK
     Route: 048
  19. DELTASONE                          /00044701/ [Concomitant]
     Indication: Product used for unknown indication
     Dosage: 20 MG, UNK
  20. TRINTELLIX [Concomitant]
     Active Substance: VORTIOXETINE HYDROBROMIDE
     Indication: Product used for unknown indication
     Dosage: 20 MG, UNK

REACTIONS (6)
  - Dyspnoea [Recovering/Resolving]
  - Hypoxia [Recovering/Resolving]
  - Oxygen saturation decreased [Recovering/Resolving]
  - Dizziness [Recovering/Resolving]
  - COVID-19 pneumonia [Recovering/Resolving]
  - Gastroenteritis clostridial [Recovering/Resolving]

NARRATIVE: CASE EVENT DATE: 20210814
